FAERS Safety Report 7736477-3 (Version None)
Quarter: 2011Q3

REPORT INFORMATION
  Report Type: 
  Country: None (occurrence: None)
  Receive Date: 20110908
  Receipt Date: 20110905
  Transmission Date: 20111222
  Serious: Yes (Other)
  Sender: FDA-Public Use
  Company Number: MX-BRISTOL-MYERS SQUIBB COMPANY-15980543

PATIENT
  Age: 25 Year
  Sex: Male

DRUGS (1)
  1. BARACLUDE [Suspect]
     Indication: HEPATITIS B
     Dosage: REDUCED:0.25MG
     Route: 048
     Dates: start: 20110425

REACTIONS (3)
  - HEPATOMEGALY [None]
  - SPLENOMEGALY [None]
  - HEPATIC PAIN [None]
